FAERS Safety Report 7798152-9 (Version None)
Quarter: 2011Q4

REPORT INFORMATION
  Report Type: 
  Country: None (occurrence: None)
  Receive Date: 20111005
  Receipt Date: 20101130
  Transmission Date: 20120403
  Serious: Yes (Hospitalization, Other)
  Sender: FDA-Public Use
  Company Number: US-BAYER-201030748NA

PATIENT
  Age: 32 Year
  Sex: Female
  Weight: 61.224 kg

DRUGS (4)
  1. DROSPIRENONE AND ETHINYL ESTRADIOL [Suspect]
     Indication: PREMENSTRUAL SYNDROME
     Dosage: UNK
     Route: 048
     Dates: start: 20090509, end: 20091009
  2. MOTRIN [Concomitant]
     Indication: PAIN
     Dosage: 600 MG, UNK
  3. DROSPIRENONE AND ETHINYL ESTRADIOL [Suspect]
     Indication: ACNE
  4. TYLENOL-500 [Concomitant]
     Indication: PAIN
     Dosage: 500 MG, UNK

REACTIONS (6)
  - GALLBLADDER PAIN [None]
  - MENSTRUATION IRREGULAR [None]
  - NEPHROLITHIASIS [None]
  - GALLBLADDER DISORDER [None]
  - CHOLECYSTITIS CHRONIC [None]
  - MIGRAINE [None]
